FAERS Safety Report 8360262-5 (Version None)
Quarter: 2012Q1

REPORT INFORMATION
  Report Type: 
  Country: None (occurrence: None)
  Receive Date: 20120323
  Receipt Date: 20111018
  Transmission Date: 20120608
  Serious: Yes (Other)
  Sender: FDA-Public Use
  Company Number: 163-21880-11101230

PATIENT
  Age: 87 Year
  Sex: Female

DRUGS (12)
  1. CALCIUM CARBONATE [Concomitant]
  2. REVLIMID [Suspect]
     Indication: CHRONIC LYMPHOCYTIC LEUKAEMIA
     Dosage: 10 MG, 1 IN 1 D, PO; 5 MG, EVERY NIGHT AT BEDTIME, PO; 5 MG, EVERY NIGHT AT BEDTIME, PO
     Route: 048
     Dates: start: 20090701
  3. REVLIMID [Suspect]
     Indication: CHRONIC LYMPHOCYTIC LEUKAEMIA
     Dosage: 10 MG, 1 IN 1 D, PO; 5 MG, EVERY NIGHT AT BEDTIME, PO; 5 MG, EVERY NIGHT AT BEDTIME, PO
     Route: 048
     Dates: start: 20090701
  4. REVLIMID [Suspect]
     Indication: CHRONIC LYMPHOCYTIC LEUKAEMIA
     Dosage: 10 MG, 1 IN 1 D, PO; 5 MG, EVERY NIGHT AT BEDTIME, PO; 5 MG, EVERY NIGHT AT BEDTIME, PO
     Route: 048
     Dates: start: 20110401
  5. ACETAMINOPHEN [Concomitant]
  6. CALCIUM [Concomitant]
  7. FISH OIL [Concomitant]
  8. QUINAPRIL [Concomitant]
  9. LEVOTHYROXINE SODIUM [Concomitant]
  10. ATENOLOL [Concomitant]
  11. ASPIRIN [Concomitant]
  12. MV [Concomitant]

REACTIONS (8)
  - MUSCLE SPASMS [None]
  - BALANCE DISORDER [None]
  - FATIGUE [None]
  - RED BLOOD CELL COUNT DECREASED [None]
  - DRUG DOSE OMISSION [None]
  - ARTHRALGIA [None]
  - BACK PAIN [None]
  - LIMB DISCOMFORT [None]
